FAERS Safety Report 16236885 (Version 2)
Quarter: 2019Q3

REPORT INFORMATION
  Report Type: Spontaneous
  Country: US (occurrence: US)
  Receive Date: 20190425
  Receipt Date: 20190731
  Transmission Date: 20191004
  Serious: No
  Sender: FDA-Public Use
  Company Number: US-TAKEDA-2019TUS024394

PATIENT
  Age: 65 Year

DRUGS (2)
  1. ENTYVIO [Suspect]
     Active Substance: VEDOLIZUMAB
     Indication: COLITIS ULCERATIVE
     Dosage: 300 MILLIGRAM
     Route: 042
     Dates: start: 20180726
  2. IMURAN [Concomitant]
     Active Substance: AZATHIOPRINE
     Indication: COLITIS ULCERATIVE
     Dosage: 100 MILLIGRAM, BID
     Route: 048
     Dates: start: 20180123

REACTIONS (2)
  - Neuropathy peripheral [Not Recovered/Not Resolved]
  - Carpal tunnel syndrome [Unknown]

NARRATIVE: CASE EVENT DATE: 20180924
